FAERS Safety Report 10603237 (Version 1)
Quarter: 2014Q4

REPORT INFORMATION
  Report Type: Spontaneous
  Country: US (occurrence: US)
  Receive Date: 20141124
  Receipt Date: 20141124
  Transmission Date: 20150529
  Serious: No
  Sender: FDA-Public Use
  Company Number: US-GILEAD-2014-0124036

PATIENT
  Age: 72 Year
  Sex: Female

DRUGS (1)
  1. LETAIRIS [Suspect]
     Active Substance: AMBRISENTAN
     Indication: PULMONARY HYPERTENSION
     Dosage: 5 MG, QD
     Route: 065
     Dates: start: 20140925

REACTIONS (6)
  - Rash [Unknown]
  - Asthenia [Unknown]
  - Oedema peripheral [Unknown]
  - Nasal congestion [Unknown]
  - Dyspnoea [Unknown]
  - Fatigue [Unknown]
